FAERS Safety Report 12224391 (Version 3)
Quarter: 2016Q1

REPORT INFORMATION
  Report Type: Spontaneous
  Country: US (occurrence: US)
  Receive Date: 20160331
  Receipt Date: 20160331
  Transmission Date: 20160526
  Serious: Yes (Other)
  Sender: FDA-Public Use
  Company Number: CHPA2016US003907

PATIENT
  Age: 53 Year
  Sex: Female
  Weight: 77.11 kg

DRUGS (6)
  1. GABAPENTIN. [Suspect]
     Active Substance: GABAPENTIN
     Indication: RESTLESS LEGS SYNDROME
     Dosage: 800 MG, BID
     Route: 048
  2. GABAPENTIN. [Suspect]
     Active Substance: GABAPENTIN
     Dosage: 400 MG, BID WITH MEALS
     Route: 048
  3. BETAMETHASONE DIPROPIONATE. [Suspect]
     Active Substance: BETAMETHASONE DIPROPIONATE
     Indication: RASH
     Dosage: UNK UNK, TID
     Route: 061
     Dates: start: 20150427
  4. TAGAMET [Suspect]
     Active Substance: CIMETIDINE
     Indication: RASH
     Route: 065
  5. CYCLOBENZAPRINE HCL TABLETS USP [Suspect]
     Active Substance: CYCLOBENZAPRINE HYDROCHLORIDE
     Indication: MUSCLE RELAXANT THERAPY
     Dosage: 10 MG, QHS
     Route: 048
  6. VOLTAREN [Suspect]
     Active Substance: DICLOFENAC SODIUM
     Indication: RASH
     Dosage: UNK, QID
     Route: 061
     Dates: start: 20150921

REACTIONS (9)
  - Exposure to chemical pollution [Unknown]
  - Rib fracture [Unknown]
  - Off label use [Unknown]
  - Upper limb fracture [Unknown]
  - Musculoskeletal disorder [Unknown]
  - Drug ineffective for unapproved indication [Unknown]
  - Pulmonary fibrosis [Unknown]
  - Pain [Unknown]
  - Road traffic accident [Unknown]

NARRATIVE: CASE EVENT DATE: 20160222
